FAERS Safety Report 8390975-0 (Version None)
Quarter: 2012Q2

REPORT INFORMATION
  Report Type: 
  Country: None (occurrence: None)
  Receive Date: 20120521
  Receipt Date: 20120514
  Transmission Date: 20120825
  Serious: Yes (Hospitalization)
  Sender: FDA-Public Use
  Company Number: 7132369

PATIENT
  Age: 69 Year
  Sex: Male

DRUGS (7)
  1. AMIODARONE HCL [Suspect]
     Indication: TACHYCARDIA
     Dosage: 1 DF (1 DF,1 IN 1 D) ORAL
     Route: 048
  2. FORTZAAR (HYZAAR) (LOSARTAN, HYDROCHLOROTHIAZIDE) [Concomitant]
  3. KARDEGIC (ACETYLSALICYLATE LYSINE) (75 MG, POWDER FOR ORAL SOLUTION) ( [Suspect]
     Indication: PROPHYLAXIS
     Dosage: 1 DF (1 DF,1 IN 1 D) ORAL
     Route: 048
     Dates: end: 20120324
  4. INEXIUM (ESOMEPRAZOLE MAGNESIUM) (20 MG) (ESOMEPRAZOLE) [Concomitant]
  5. PREVISCAN (FLUINDIONE) (20 MG,TABLET) (FLUINDINE) [Suspect]
     Indication: AORTIC VALVE REPLACEMENT
     Dosage: 1 DF (1 DF,1 IN 1 D) ORAL
     Route: 048
     Dates: start: 20040101, end: 20120324
  6. LEVOTHYROXINE SODIUM [Suspect]
     Indication: HYPOTHYROIDISM
     Dosage: 1 DF (1 DF,1 IN 1 D) ORAL
     Route: 048
  7. CARDENSIEL 2.5 MG (BISOPROLOL FUMARATE) (BISOPROLOL FUMARATE) [Concomitant]

REACTIONS (8)
  - HAEMATOMA [None]
  - LIMB INJURY [None]
  - ARRHYTHMIA [None]
  - ROAD TRAFFIC ACCIDENT [None]
  - DRUG INTERACTION [None]
  - ATRIAL FIBRILLATION [None]
  - OPEN WOUND [None]
  - ANAEMIA [None]
